FAERS Safety Report 15488890 (Version 3)
Quarter: 2018Q4

REPORT INFORMATION
  Report Type: Spontaneous
  Country: BE (occurrence: BE)
  Receive Date: 20181011
  Receipt Date: 20181126
  Transmission Date: 20190205
  Serious: Yes (Hospitalization, Other)
  Sender: FDA-Public Use
  Company Number: BE-PFIZER INC-2018403951

PATIENT
  Age: 50 Year
  Sex: Female

DRUGS (4)
  1. MITOMYCIN C [Suspect]
     Active Substance: MITOMYCIN
     Indication: METASTASES TO PERITONEUM
     Dosage: 24 MG, UNK (15 MG/M2)
     Route: 033
     Dates: start: 201001
  2. DOXORUBICIN HCL [Suspect]
     Active Substance: DOXORUBICIN HYDROCHLORIDE
     Indication: METASTASES TO PERITONEUM
     Dosage: 24 MG, UNK (15 MG/M2)
     Route: 033
     Dates: start: 201001
  3. CALCIUM FOLINATE [Suspect]
     Active Substance: LEUCOVORIN CALCIUM
     Indication: METASTASES TO PERITONEUM
     Dosage: 32 MG, UNK (20 MG/M2)
     Route: 042
     Dates: start: 201001
  4. FLUOROURACIL. [Suspect]
     Active Substance: FLUOROURACIL
     Indication: METASTASES TO PERITONEUM
     Dosage: 1280 MG, UNK (800 MG/M2)
     Route: 042
     Dates: start: 201001

REACTIONS (1)
  - Encapsulating peritoneal sclerosis [Recovered/Resolved]

NARRATIVE: CASE EVENT DATE: 2013
